FAERS Safety Report 4559053-2 (Version None)
Quarter: 2005Q1

REPORT INFORMATION
  Report Type: 
  Country: None (occurrence: None)
  Receive Date: 20050124
  Receipt Date: 20050111
  Transmission Date: 20050727
  Serious: Yes (Death, Hospitalization)
  Sender: FDA-Public Use
  Company Number: US-JNJFOC-20030903697

PATIENT
  Sex: Female

DRUGS (22)
  1. REMICADE [Suspect]
     Indication: RHEUMATOID ARTHRITIS
     Route: 042
     Dates: start: 20010101
  2. LEVAQUIN [Suspect]
     Indication: DRUG USE FOR UNKNOWN INDICATION
  3. INH [Suspect]
     Indication: DRUG USE FOR UNKNOWN INDICATION
  4. RIFAMPIN [Suspect]
     Indication: DRUG USE FOR UNKNOWN INDICATION
  5. ETHAMBUTOL HCL [Suspect]
     Indication: DRUG USE FOR UNKNOWN INDICATION
  6. PYRAZINAMIDE [Suspect]
     Indication: DRUG USE FOR UNKNOWN INDICATION
  7. VITAMIN B6 [Suspect]
     Indication: DRUG USE FOR UNKNOWN INDICATION
  8. PROPOXY [Concomitant]
  9. AMITRYPTYLIN [Concomitant]
  10. NORVASC [Concomitant]
  11. ATENOLOL [Concomitant]
  12. ASPIRIN [Concomitant]
  13. CAPASIN [Concomitant]
  14. PEPCID [Concomitant]
  15. CLONAZEPAM [Concomitant]
  16. GABITRIL [Concomitant]
  17. MORPHINE [Concomitant]
  18. PREDNISONE [Concomitant]
  19. NEURONTIN [Concomitant]
  20. VIOXX [Concomitant]
  21. TYLENOL W/ CODEINE NO. 3 [Concomitant]
  22. ULTRAM [Concomitant]

REACTIONS (33)
  - ANAEMIA [None]
  - ATRIAL FIBRILLATION [None]
  - BRONCHITIS [None]
  - CHOLECYSTITIS [None]
  - CONVULSION [None]
  - CREUTZFELDT-JAKOB DISEASE [None]
  - DECREASED APPETITE [None]
  - DEMENTIA [None]
  - DEPRESSION [None]
  - DYSPHAGIA [None]
  - EMPHYSEMA [None]
  - ENCEPHALITIS [None]
  - FUNGAL RASH [None]
  - GAIT DISTURBANCE [None]
  - GENITAL CANDIDIASIS [None]
  - HEPATITIS [None]
  - HERPES ZOSTER [None]
  - HYPERTENSION [None]
  - METABOLIC ENCEPHALOPATHY [None]
  - PNEUMONIA ASPIRATION [None]
  - POST HERPETIC NEURALGIA [None]
  - PSEUDOMONAS INFECTION [None]
  - PULMONARY TUBERCULOSIS [None]
  - RENAL CYST [None]
  - RESPIRATORY FAILURE [None]
  - RHEUMATOID ARTHRITIS [None]
  - SINUSITIS [None]
  - STAPHYLOCOCCAL BACTERAEMIA [None]
  - STAPHYLOCOCCAL INFECTION [None]
  - TACHYCARDIA [None]
  - URINARY INCONTINENCE [None]
  - WEIGHT DECREASED [None]
  - WOUND [None]
